FAERS Safety Report 5000310-3 (Version None)
Quarter: 2006Q2

REPORT INFORMATION
  Report Type: 
  Country: None (occurrence: None)
  Receive Date: 20060511
  Receipt Date: 20060403
  Transmission Date: 20061013
  Serious: Yes (Hospitalization, Disabling)
  Sender: FDA-Public Use
  Company Number: US-MERCK-0604USA00167

PATIENT
  Age: 53 Year
  Sex: Male
  Weight: 68 kg

DRUGS (8)
  1. VIOXX [Suspect]
     Indication: PAIN
     Route: 048
     Dates: start: 20030101, end: 20040901
  2. PLAVIX [Concomitant]
     Route: 065
  3. TOPROL-XL [Concomitant]
     Route: 048
  4. ALTACE [Concomitant]
     Route: 065
  5. PROTONIX [Concomitant]
     Route: 065
  6. NORVASC [Concomitant]
     Route: 065
  7. ZOCOR [Concomitant]
     Route: 065
  8. ASPIRIN [Concomitant]
     Route: 065

REACTIONS (6)
  - ADVERSE EVENT [None]
  - ANXIETY [None]
  - ARTERIAL OCCLUSIVE DISEASE [None]
  - CEREBROVASCULAR ACCIDENT [None]
  - DEPRESSION [None]
  - OVERDOSE [None]
